FAERS Safety Report 9897450 (Version 2)
Quarter: 2016Q1

REPORT INFORMATION
  Report Type: Spontaneous
  Country: ES (occurrence: ES)
  Receive Date: 20140214
  Receipt Date: 20160121
  Transmission Date: 20160526
  Serious: Yes (Death, Hospitalization)
  Sender: FDA-Public Use
  Company Number: ES-JNJFOC-20140204021

PATIENT
  Age: 64 Year
  Sex: Male

DRUGS (4)
  1. STELARA [Suspect]
     Active Substance: USTEKINUMAB
     Indication: PSORIASIS
     Route: 058
     Dates: start: 20111201, end: 20120127
  2. INFLIXIMAB [Suspect]
     Active Substance: INFLIXIMAB
     Indication: PSORIASIS
     Route: 042
     Dates: start: 20091109, end: 20111201
  3. EFALIZUMAB [Suspect]
     Active Substance: EFALIZUMAB
     Indication: PSORIASIS
     Route: 065
     Dates: start: 20081118, end: 20090324
  4. CYCLOSPORINE. [Suspect]
     Active Substance: CYCLOSPORINE
     Indication: PSORIASIS
     Route: 065
     Dates: start: 20090325, end: 20090528

REACTIONS (1)
  - Non-small cell lung cancer stage IV [Fatal]

NARRATIVE: CASE EVENT DATE: 20120127
